FAERS Safety Report 7072831-3 (Version None)
Quarter: 2010Q4

REPORT INFORMATION
  Report Type: 
  Country: None (occurrence: None)
  Receive Date: 20101029
  Receipt Date: 20100318
  Transmission Date: 20110411
  Serious: No
  Sender: FDA-Public Use
  Company Number: A0850865A

PATIENT
  Age: 79 Year
  Sex: Female

DRUGS (4)
  1. ADVAIR DISKUS 100/50 [Suspect]
     Indication: CHRONIC OBSTRUCTIVE PULMONARY DISEASE
     Dosage: 1PUFF TWICE PER DAY
     Route: 055
  2. AGGRENOX [Concomitant]
  3. LEVOTHYROXINE [Concomitant]
  4. XALATAN [Concomitant]

REACTIONS (1)
  - PAROSMIA [None]
